FAERS Safety Report 5764783-0 (Version None)
Quarter: 2008Q2

REPORT INFORMATION
  Report Type: 
  Country: None (occurrence: None)
  Receive Date: 20080605
  Receipt Date: 20080520
  Transmission Date: 20081010
  Serious: Yes (Hospitalization)
  Sender: FDA-Public Use
  Company Number: 230390J08CAN

PATIENT
  Age: 51 Year
  Sex: Female

DRUGS (6)
  1. REBIF [Suspect]
     Indication: MULTIPLE SCLEROSIS
     Dates: start: 20061023, end: 20080321
  2. REBIF [Suspect]
     Indication: MULTIPLE SCLEROSIS RELAPSE
     Dates: start: 20061023, end: 20080321
  3. REBIF [Suspect]
     Indication: MULTIPLE SCLEROSIS
     Dates: start: 20080220
  4. REBIF [Suspect]
     Indication: MULTIPLE SCLEROSIS RELAPSE
     Dates: start: 20080220
  5. ALERTEC (MODAFINIL) [Concomitant]
  6. BACLOFEN [Concomitant]

REACTIONS (1)
  - BREAST CANCER FEMALE [None]
